FAERS Safety Report 16737275 (Version 1)
Quarter: 2019Q3

REPORT INFORMATION
  Report Type: Spontaneous
  Country: GB (occurrence: GB)
  Receive Date: 20190823
  Receipt Date: 20190823
  Transmission Date: 20191005
  Serious: Yes (Other)
  Sender: FDA-Public Use
  Company Number: GB-TEVA-2019-GB-1095630

PATIENT
  Age: 10 Year
  Sex: Female
  Weight: 27.4 kg

DRUGS (2)
  1. SODIUM VALPROATE [Concomitant]
     Active Substance: VALPROATE SODIUM
  2. LEVETIRACETAM. [Suspect]
     Active Substance: LEVETIRACETAM
     Dosage: 600MG
     Route: 048
     Dates: start: 20190218, end: 20190331

REACTIONS (4)
  - Psychomotor hyperactivity [Recovered/Resolved]
  - Personality change [Recovered/Resolved]
  - Affect lability [Recovered/Resolved]
  - Aggression [Recovered/Resolved]

NARRATIVE: CASE EVENT DATE: 20190219
